FAERS Safety Report 8969240 (Version 1)
Quarter: 2012Q4

REPORT INFORMATION
  Report Type: 
  Country: US (occurrence: US)
  Receive Date: 20121218
  Receipt Date: 20121218
  Transmission Date: 20130627
  Serious: No
  Sender: FDA-Public Use
  Company Number: US-BRISTOL-MYERS SQUIBB COMPANY-16666554

PATIENT
  Age: 12 Year
  Sex: Female
  Weight: 68.03 kg

DRUGS (2)
  1. ABILIFY [Suspect]
     Indication: BIPOLAR DISORDER
     Dosage: restarted on Jan2012
     Dates: start: 201106
  2. CLONAZEPAM [Concomitant]

REACTIONS (1)
  - Eye movement disorder [Not Recovered/Not Resolved]
